FAERS Safety Report 14878431 (Version 1)
Quarter: 2018Q2

REPORT INFORMATION
  Report Type: Spontaneous
  Country: US (occurrence: US)
  Receive Date: 20180511
  Receipt Date: 20180511
  Transmission Date: 20180711
  Serious: No
  Sender: FDA-Public Use
  Company Number: US-SCIEGEN PHARMACEUTICALS INC-2018SCISPO00254

PATIENT

DRUGS (1)
  1. GABAPENTIN TABLETS,USP [Suspect]
     Active Substance: GABAPENTIN
     Indication: NEURALGIA
     Dosage: 3 TABLETS PER DAY
     Route: 065
     Dates: start: 201803

REACTIONS (5)
  - Dizziness [Recovered/Resolved]
  - Depression [Recovered/Resolved]
  - Product use in unapproved indication [None]
  - Insomnia [Recovered/Resolved]
  - Gait disturbance [Recovered/Resolved]
